FAERS Safety Report 24159457 (Version 3)
Quarter: 2024Q3

REPORT INFORMATION
  Report Type: Report from Study
  Country: DE (occurrence: DE)
  Receive Date: 20240731
  Receipt Date: 20240820
  Transmission Date: 20241017
  Serious: Yes (Hospitalization, Other)
  Sender: JAZZ
  Company Number: DE-JAZZ PHARMACEUTICALS-2024-DE-011506

PATIENT

DRUGS (16)
  1. EPIDIOLEX [Suspect]
     Active Substance: CANNABIDIOL
     Indication: Product used for unknown indication
     Dosage: 200 MILLIGRAM, QD
     Route: 048
     Dates: start: 20240409
  2. EPIDIOLEX [Suspect]
     Active Substance: CANNABIDIOL
     Dosage: 400 MILLIGRAM, QD
     Route: 048
     Dates: start: 20240410
  3. EPIDIOLEX [Suspect]
     Active Substance: CANNABIDIOL
     Dosage: 840 MILLIGRAM, QD
     Route: 048
     Dates: start: 20240416
  4. EPIDIOLEX [Suspect]
     Active Substance: CANNABIDIOL
     Dosage: 1240 MILLIGRAM, QD
     Route: 048
     Dates: start: 20240425
  5. EPIDIOLEX [Suspect]
     Active Substance: CANNABIDIOL
     Dosage: 1440 MILLIGRAM, QD
     Route: 048
     Dates: start: 20240503
  6. EPIDIOLEX [Suspect]
     Active Substance: CANNABIDIOL
     Dosage: 1640 MILLIGRAM, QD
     Route: 048
     Dates: start: 20240507
  7. EPIDIOLEX [Suspect]
     Active Substance: CANNABIDIOL
     Dosage: 1240 MILLIGRAM, QD
     Route: 048
     Dates: start: 20240516
  8. EPIDIOLEX [Suspect]
     Active Substance: CANNABIDIOL
     Dosage: 1240 MILLIGRAM, QD
     Route: 048
     Dates: start: 20240522
  9. EPIDIOLEX [Suspect]
     Active Substance: CANNABIDIOL
     Dosage: 840 MILLIGRAM, QD
     Route: 048
     Dates: start: 20240523
  10. EPIDIOLEX [Suspect]
     Active Substance: CANNABIDIOL
     Dosage: 630 MILLIGRAM, QD
     Route: 048
     Dates: start: 20240622
  11. EPIDIOLEX [Suspect]
     Active Substance: CANNABIDIOL
     Dosage: 420 MILLIGRAM, QD
     Route: 048
     Dates: start: 20240627
  12. PHENYTOIN [Concomitant]
     Active Substance: PHENYTOIN
     Indication: Product used for unknown indication
     Dosage: 175 MILLIGRAM, BID
     Route: 048
     Dates: start: 20240426
  13. BRIVARACETAM [Concomitant]
     Active Substance: BRIVARACETAM
     Indication: Product used for unknown indication
     Dosage: 100 MILLIGRAM, BID
     Route: 048
     Dates: start: 20240521
  14. ZONISAMIDE [Concomitant]
     Active Substance: ZONISAMIDE
     Indication: Product used for unknown indication
     Dosage: 100 MILLIGRAM, BID
     Route: 048
     Dates: start: 20240521, end: 20240617
  15. ZONISAMIDE [Concomitant]
     Active Substance: ZONISAMIDE
     Dosage: 150 MILLIGRAM, BID
     Route: 048
     Dates: start: 20240618, end: 20240628
  16. CLOBAZAM [Concomitant]
     Active Substance: CLOBAZAM
     Indication: Product used for unknown indication
     Dosage: 10 MILLIGRAM, BID
     Route: 048
     Dates: start: 20220621, end: 20240622

REACTIONS (2)
  - Partial seizures [Not Recovered/Not Resolved]
  - Generalised tonic-clonic seizure [Recovered/Resolved]

NARRATIVE: CASE EVENT DATE: 20240615
